FAERS Safety Report 6145614-6 (Version None)
Quarter: 2009Q2

REPORT INFORMATION
  Report Type: 
  Country: None (occurrence: None)
  Receive Date: 20090407
  Receipt Date: 20090401
  Transmission Date: 20091009
  Serious: Yes (Congenital Anomaly, Other)
  Sender: FDA-Public Use
  Company Number: US-PFIZER INC-2007095340

PATIENT
  Sex: Male
  Weight: 2 kg

DRUGS (2)
  1. ZOLOFT [Suspect]
     Route: 064
     Dates: start: 19991001
  2. TYLENOL [Concomitant]
     Indication: EAR DISORDER

REACTIONS (19)
  - ADJUSTMENT DISORDER [None]
  - AORTIC VALVE DISEASE [None]
  - ATRIAL SEPTAL DEFECT [None]
  - BALANCE DISORDER [None]
  - CRYPTORCHISM [None]
  - DENTAL CARIES [None]
  - DRUG EXPOSURE DURING PREGNANCY [None]
  - HAEMANGIOMA OF SKIN [None]
  - INFANTILE APNOEIC ATTACK [None]
  - LIMB REDUCTION DEFECT [None]
  - MATERNAL DRUGS AFFECTING FOETUS [None]
  - MITRAL VALVE DISEASE [None]
  - NAEVUS FLAMMEUS [None]
  - PATENT DUCTUS ARTERIOSUS [None]
  - PULMONARY VALVE DISEASE [None]
  - SCOLIOSIS [None]
  - TOOTH DISORDER [None]
  - TORTICOLLIS [None]
  - TRICUSPID VALVE DISEASE [None]
